FAERS Safety Report 7537096-4 (Version None)
Quarter: 2011Q2

REPORT INFORMATION
  Report Type: 
  Country: None (occurrence: None)
  Receive Date: 20110609
  Receipt Date: 20110530
  Transmission Date: 20111010
  Serious: Yes (Other)
  Sender: FDA-Public Use
  Company Number: PHHY2011DE48948

PATIENT
  Sex: Male

DRUGS (2)
  1. LEVOTHYROXINE SODIUM [Concomitant]
     Dosage: UNK UKN, UNK
  2. RITALIN [Suspect]
     Dosage: 60 MG, QD

REACTIONS (1)
  - INTRAOCULAR PRESSURE INCREASED [None]
